FAERS Safety Report 9703413 (Version 1)
Quarter: 2013Q4

REPORT INFORMATION
  Report Type: Spontaneous
  Country: NZ (occurrence: NZ)
  Receive Date: 20131122
  Receipt Date: 20131122
  Transmission Date: 20140711
  Serious: Yes (Other)
  Sender: FDA-Public Use
  Company Number: PHHY2013NZ133382

PATIENT
  Age: 86 Year
  Sex: Female

DRUGS (6)
  1. ZOLEDRONIC ACID [Suspect]
     Dosage: UNK UKN, UNK
  2. CILAZAPRIL [Concomitant]
     Dosage: UNK UKN, UNK
     Route: 048
  3. HYDROCHLOROTHIAZIDE [Concomitant]
     Dosage: UNK UKN, UNK
     Route: 048
  4. SIMVASTATIN [Concomitant]
     Dosage: UNK UKN, UNK
     Route: 048
  5. OMEPRAZOLE [Concomitant]
     Dosage: UNK UKN, UNK
     Route: 048
  6. LEVOTHYROXINE [Concomitant]
     Dosage: UNK UKN, UNK
     Route: 048

REACTIONS (4)
  - Post-traumatic pain [Unknown]
  - Periorbital oedema [Unknown]
  - Arthralgia [Unknown]
  - Bone pain [Unknown]
